FAERS Safety Report 10196534 (Version 2)
Quarter: 2014Q2

REPORT INFORMATION
  Report Type: Spontaneous
  Country: US (occurrence: None)
  Receive Date: 20140522
  Receipt Date: 20140606
  Transmission Date: 20141212
  Serious: Yes (Hospitalization)
  Sender: FDA-Public Use
  Company Number: QSC-2014-0309

PATIENT
  Age: 43 Year
  Sex: Female
  Weight: 78.5 kg

DRUGS (19)
  1. ADRENOCORTICOTROPIC HORMONE [Suspect]
     Indication: SYSTEMIC LUPUS ERYTHEMATOSUS
     Route: 030
     Dates: start: 201311, end: 201404
  2. PLAQUENIL /00072602/ (HYDROXYCHLOROQUINE PHOSPHATE) [Concomitant]
  3. SAVELLA (MILNACIPRAN HYDROCHLORIDE) [Concomitant]
  4. DEXILANT (DEXLANSOPRAZOLE) [Concomitant]
  5. BENLYSTA (BELIMUMAB) [Concomitant]
  6. NORCO (HYDROCODONE BITARTRATE, PARACETAMOL) [Concomitant]
  7. FLONASE /00908302/ (MOMETASONE FUROATE) [Concomitant]
  8. CELLCEPT /01275102/ (MYCOPHENOLATE MOFETIL) [Concomitant]
  9. CLONAZEPAM (CLONAZEPAM) [Concomitant]
  10. BUTRANS (BUPRENORPHINE) [Concomitant]
  11. BYSTOLIC (NEBIVOLOL HYDROCHLORIDE) [Concomitant]
  12. SKELAXIN /00611501/ (METAXALONE) [Concomitant]
  13. XARELTO (RIVAROXABAN) [Concomitant]
  14. CYCLOBENZAPRINE (CYCLOBENZAPRINE) [Concomitant]
  15. CALCIUM (CALCIUM) [Concomitant]
  16. KEPPRA (LEVETIRACETAM) [Concomitant]
  17. ASTELIN /00085801/ (DIPROPHYLLINE) [Concomitant]
  18. VITAMIN D3 (COLECALCIFEROL) [Concomitant]
  19. TOPAMAX (TOPIRAMATE) [Concomitant]

REACTIONS (2)
  - Cerebrovascular accident [None]
  - Vasculitis cerebral [None]
